FAERS Safety Report 19615762 (Version 3)
Quarter: 2022Q2

REPORT INFORMATION
  Report Type: Spontaneous
  Country: AU (occurrence: AU)
  Receive Date: 20210727
  Receipt Date: 20220418
  Transmission Date: 20220721
  Serious: Yes (Other)
  Sender: FDA-Public Use
  Company Number: AU-PFIZER INC-202100911539

PATIENT
  Age: 26 Year
  Sex: Male
  Weight: 104.6 kg

DRUGS (12)
  1. ATORVASTATIN CALCIUM [Suspect]
     Active Substance: ATORVASTATIN CALCIUM
     Dosage: 20 MG, DAILY AT NIGHT
     Route: 048
  2. ALBUTEROL [Suspect]
     Active Substance: ALBUTEROL
     Dosage: 1-2 PUFF, 24 HR MAX 8
  3. CARVEDILOL [Suspect]
     Active Substance: CARVEDILOL
     Dosage: 15 MG, DAILY
  4. OLANZAPINE [Concomitant]
     Active Substance: OLANZAPINE
     Dosage: 30 MG, DAILY (10MG MANE AND 20MG NOCTE)
     Route: 048
  5. MIRTAZAPINE [Concomitant]
     Active Substance: MIRTAZAPINE
     Dosage: 45 MG, DAILY (NOCTE)
     Route: 048
  6. PALIPERIDONE [Concomitant]
     Active Substance: PALIPERIDONE
     Dosage: 150 MG (4 WEEKLY)
  7. PANTOPRAZOLE [Concomitant]
     Active Substance: PANTOPRAZOLE
     Dosage: 40 MG, DAILY (MANE)
     Route: 048
  8. FLUTICASONE PROPIONATE [Concomitant]
     Active Substance: FLUTICASONE PROPIONATE
     Dosage: UNK, 2X/DAY
  9. FEXOFENADINE [Concomitant]
     Active Substance: FEXOFENADINE HYDROCHLORIDE
     Dosage: 180 MG, DAILY (MANE)
     Route: 048
  10. METAMUCIL [Concomitant]
     Active Substance: PLANTAGO SEED
     Dosage: 2 DF, DAILY (NOCTE)
     Route: 048
  11. LORAZEPAM [Concomitant]
     Active Substance: LORAZEPAM
     Dosage: 2 MG, AS NEEDED (PRN, 24HR MAX 8MG/DAY)
     Route: 048
  12. BENZTROPINE MESYLATE [Concomitant]
     Active Substance: BENZTROPINE MESYLATE
     Dosage: 2 MG (2MG , 24HR MAX 6MG)
     Route: 048

REACTIONS (6)
  - Electrocardiogram QT prolonged [Unknown]
  - Electrocardiogram ST segment elevation [Unknown]
  - Palpitations [Unknown]
  - Heart rate abnormal [Unknown]
  - Troponin I increased [Unknown]
  - Sinus tachycardia [Unknown]

NARRATIVE: CASE EVENT DATE: 20210704
